FAERS Safety Report 5684649-4 (Version None)
Quarter: 2008Q1

REPORT INFORMATION
  Report Type: 
  Country: None (occurrence: None)
  Receive Date: 20080328
  Receipt Date: 20080319
  Transmission Date: 20080703
  Serious: Yes (Other)
  Sender: FDA-Public Use
  Company Number: ZA-ROCHE-554481

PATIENT
  Sex: Female

DRUGS (1)
  1. ROACCUTANE [Suspect]
     Indication: DRUG USE FOR UNKNOWN INDICATION
     Dosage: LOW DOSE.
     Route: 065

REACTIONS (4)
  - ARRHYTHMIA [None]
  - CARDIOMYOPATHY [None]
  - GASTROENTERITIS [None]
  - SYNCOPE [None]
